FAERS Safety Report 10167630 (Version 1)
Quarter: 2014Q2

REPORT INFORMATION
  Report Type: Other
  Country: KH (occurrence: KH)
  Receive Date: 20140512
  Receipt Date: 20140512
  Transmission Date: 20141212
  Serious: Yes (Life-Threatening, Disabling)
  Sender: FDA-Public Use
  Company Number: KH-BRISTOL-MYERS SQUIBB COMPANY-20721353

PATIENT
  Sex: 0

DRUGS (7)
  1. EFAVIRENZ TABS 600 MG [Suspect]
     Indication: HIV INFECTION
     Route: 048
  2. RIFAMPIN [Concomitant]
  3. RIFAMPIN [Concomitant]
  4. ETHAMBUTOL HCL [Concomitant]
  5. PYRAZINAMIDE [Concomitant]
  6. LAMIVUDINE [Concomitant]
  7. STAVUDINE [Concomitant]

REACTIONS (1)
  - Delirium [Unknown]
